FAERS Safety Report 15547804 (Version 2)
Quarter: 2018Q4

REPORT INFORMATION
  Report Type: Spontaneous
  Country: ZA (occurrence: ZA)
  Receive Date: 20181024
  Receipt Date: 20181105
  Transmission Date: 20190205
  Serious: Yes (Death)
  Sender: FDA-Public Use
  Company Number: ZA-PFIZER INC-2018384784

PATIENT
  Age: 65 Year
  Sex: Female

DRUGS (3)
  1. URBANOL [Suspect]
     Active Substance: CLOBAZAM
     Dosage: 5 MG, UNK
  2. XANOR SR [Suspect]
     Active Substance: ALPRAZOLAM
     Dosage: 1 MG, UNK
  3. MEDPLOZ 10MG [Suspect]
     Active Substance: ZOLPIDEM TARTRATE
     Dosage: 10 MG, UNK

REACTIONS (1)
  - Pneumothorax [Fatal]
